FAERS Safety Report 6095983-0 (Version None)
Quarter: 2009Q1

REPORT INFORMATION
  Report Type: 
  Country: None (occurrence: None)
  Receive Date: 20090227
  Receipt Date: 20080731
  Transmission Date: 20090719
  Serious: No
  Sender: FDA-Public Use
  Company Number: A0740501B

PATIENT
  Age: 11 Month
  Sex: Male

DRUGS (1)
  1. LAMICTAL [Suspect]
     Indication: PARTIAL SEIZURES
     Dosage: 50MG PER DAY
     Dates: start: 20080712

REACTIONS (6)
  - COUGH [None]
  - DRUG EXPOSURE VIA BREAST MILK [None]
  - IRRITABILITY [None]
  - PYREXIA [None]
  - RASH [None]
  - RHINORRHOEA [None]
